FAERS Safety Report 7611131-7 (Version None)
Quarter: 2011Q3

REPORT INFORMATION
  Report Type: 
  Country: None (occurrence: None)
  Receive Date: 20110707
  Receipt Date: 20110628
  Transmission Date: 20111222
  Serious: Yes (Other)
  Sender: FDA-Public Use
  Company Number: 2011SP030048

PATIENT
  Age: 18 Year
  Sex: Female
  Weight: 55 kg

DRUGS (3)
  1. FLUTICASONE PROPIONATE [Suspect]
     Indication: ASTHMA
     Dates: start: 20110412
  2. DESLORATADINE [Suspect]
     Indication: ASTHMA
     Dosage: 5 MG; PO
     Route: 048
     Dates: start: 20110412
  3. SINGULAIR [Suspect]
     Indication: HYPERSENSITIVITY
     Dosage: 10 MG;QD;PO
     Route: 048
     Dates: start: 20110412, end: 20110430

REACTIONS (1)
  - PHOTOSENSITIVITY REACTION [None]
